FAERS Safety Report 11749154 (Version 2)
Quarter: 2015Q4

REPORT INFORMATION
  Report Type: Spontaneous
  Country: US (occurrence: US)
  Receive Date: 20151118
  Receipt Date: 20151130
  Transmission Date: 20160304
  Serious: Yes (Life-Threatening, Hospitalization)
  Sender: FDA-Public Use
  Company Number: US-TEVA-610042USA

PATIENT
  Age: 34 Year
  Sex: Male

DRUGS (4)
  1. HYDROCHLORTHIAZIDE [Concomitant]
     Active Substance: HYDROCHLOROTHIAZIDE
     Route: 065
  2. PROPOFOL. [Suspect]
     Active Substance: PROPOFOL
     Indication: UPPER RESPIRATORY TRACT ENDOSCOPY
  3. ALLOPURINOL. [Concomitant]
     Active Substance: ALLOPURINOL
     Route: 065
  4. FLUVASTATIN [Suspect]
     Active Substance: FLUVASTATIN SODIUM
     Route: 065

REACTIONS (3)
  - Myopathy [Recovering/Resolving]
  - Propofol infusion syndrome [Recovered/Resolved]
  - Muscle necrosis [Recovered/Resolved]
